FAERS Safety Report 13826132 (Version 1)
Quarter: 2017Q3

REPORT INFORMATION
  Report Type: Report from Study
  Country: US (occurrence: US)
  Receive Date: 20170802
  Receipt Date: 20170802
  Transmission Date: 20171127
  Serious: Yes (Hospitalization, Other)
  Sender: FDA-Public Use
  Company Number: US-MYLANLABS-2017M1047252

PATIENT

DRUGS (9)
  1. INFLIXIMAB [Suspect]
     Active Substance: INFLIXIMAB
     Dosage: 203 MG, ONCE
     Route: 042
     Dates: start: 20150302, end: 20150302
  2. INFLIXIMAB [Suspect]
     Active Substance: INFLIXIMAB
     Dosage: 320.5 MG, ONCE
     Route: 042
     Dates: start: 20151109, end: 20151109
  3. PREDNISONE. [Suspect]
     Active Substance: PREDNISONE
     Indication: RHEUMATOID ARTHRITIS
     Dosage: 5 MG, QOD
     Route: 048
     Dates: start: 20150701
  4. INFLIXIMAB [Suspect]
     Active Substance: INFLIXIMAB
     Dosage: 203 MG, ONCE
     Route: 042
     Dates: start: 20150331, end: 20150331
  5. INFLIXIMAB [Suspect]
     Active Substance: INFLIXIMAB
     Dosage: 202.8 MG, ONCE
     Route: 042
     Dates: start: 20150721, end: 20150721
  6. INFLIXIMAB [Suspect]
     Active Substance: INFLIXIMAB
     Dosage: 202 MG, ONCE
     Route: 042
     Dates: start: 20150527, end: 20150527
  7. INFLIXIMAB [Suspect]
     Active Substance: INFLIXIMAB
     Dosage: 320.5 MG, ONCE
     Route: 042
     Dates: start: 20150915, end: 20150915
  8. INFLIXIMAB [Suspect]
     Active Substance: INFLIXIMAB
     Dosage: 320.5 MG, ONCE
     Route: 042
     Dates: start: 20160104, end: 20160104
  9. INFLIXIMAB [Suspect]
     Active Substance: INFLIXIMAB
     Indication: RHEUMATOID ARTHRITIS
     Dosage: 203 MG, ONCE
     Route: 042
     Dates: start: 20150216, end: 20150216

REACTIONS (3)
  - Back pain [Recovered/Resolved]
  - Spinal compression fracture [Recovered/Resolved]
  - Condition aggravated [Recovered/Resolved]

NARRATIVE: CASE EVENT DATE: 20160118
